FAERS Safety Report 25385319 (Version 1)
Quarter: 2025Q2

REPORT INFORMATION
  Report Type: Spontaneous
  Country: US (occurrence: US)
  Receive Date: 20250602
  Receipt Date: 20250602
  Transmission Date: 20250716
  Serious: Yes (Life-Threatening, Other)
  Sender: OTSUKA
  Company Number: US-OTSUKA-2025_012999

PATIENT
  Age: 52 Year
  Sex: Female

DRUGS (2)
  1. REXULTI [Suspect]
     Active Substance: BREXPIPRAZOLE
     Indication: Bipolar disorder
     Dosage: 0.5 MG, DAILY
     Route: 048
     Dates: start: 20240304
  2. REXULTI [Suspect]
     Active Substance: BREXPIPRAZOLE
     Dosage: 1 MG, DAILY
     Route: 048
     Dates: end: 20250427

REACTIONS (2)
  - Suicidal ideation [Recovered/Resolved]
  - Product use in unapproved indication [Unknown]

NARRATIVE: CASE EVENT DATE: 20240304
